FAERS Safety Report 15005759 (Version 5)
Quarter: 2024Q3

REPORT INFORMATION
  Report Type: Spontaneous
  Country: JP (occurrence: JP)
  Receive Date: 20180613
  Receipt Date: 20240828
  Transmission Date: 20241017
  Serious: Yes (Other)
  Sender: PFIZER
  Company Number: JP-MLMSERVICE-20180607-1201712-1

PATIENT
  Age: 7 Decade
  Sex: Male

DRUGS (2)
  1. DOCETAXEL [Suspect]
     Active Substance: DOCETAXEL\DOCETAXEL ANHYDROUS
     Indication: Prostate cancer
     Dosage: UNK, (2 COURSES), (FIVE DAYS INTO HIS SECOND COURSE)
  2. PREDNISONE [Suspect]
     Active Substance: PREDNISONE
     Indication: Prostate cancer
     Dosage: (2 COURSES), (FIVE DAYS INTO HIS SECOND COURSE)

REACTIONS (3)
  - Bacteraemia [Recovered/Resolved]
  - Helicobacter infection [Recovered/Resolved]
  - Nosocomial infection [Recovered/Resolved]
